FAERS Safety Report 21962525 (Version 1)
Quarter: 2023Q1

REPORT INFORMATION
  Report Type: Spontaneous
  Country: US (occurrence: None)
  Receive Date: 20230206
  Receipt Date: 20230206
  Transmission Date: 20230417
  Serious: Yes (Other)
  Sender: FDA-Public Use
  Company Number: None

PATIENT
  Age: 75 Year
  Sex: Male

DRUGS (1)
  1. COSENTYX [Suspect]
     Active Substance: SECUKINUMAB
     Indication: Psoriasis
     Dosage: 300MG OTHER  SUBCUTANEOUS?
     Route: 058
     Dates: start: 20210223

REACTIONS (2)
  - Bladder cancer [None]
  - Therapy interrupted [None]

NARRATIVE: CASE EVENT DATE: 20230130
